FAERS Safety Report 6915839-8 (Version None)
Quarter: 2010Q3

REPORT INFORMATION
  Report Type: 
  Country: None (occurrence: None)
  Receive Date: 20100810
  Receipt Date: 20100803
  Transmission Date: 20110219
  Serious: Yes (Hospitalization, Other)
  Sender: FDA-Public Use
  Company Number: US-ASTRAZENECA-2007UW21501

PATIENT
  Age: 456 Month
  Sex: Male
  Weight: 99.8 kg

DRUGS (27)
  1. SEROQUEL [Suspect]
     Indication: ANXIETY
     Route: 048
     Dates: start: 19980101
  2. SEROQUEL [Suspect]
     Indication: DEPRESSION
     Route: 048
     Dates: start: 19980101
  3. SEROQUEL [Suspect]
     Indication: SCHIZOPHRENIA
     Route: 048
     Dates: start: 19980101
  4. SEROQUEL [Suspect]
     Dosage: 100- 900 MG
     Route: 048
     Dates: start: 20050111
  5. SEROQUEL [Suspect]
     Dosage: 100- 900 MG
     Route: 048
     Dates: start: 20050111
  6. SEROQUEL [Suspect]
     Dosage: 100- 900 MG
     Route: 048
     Dates: start: 20050111
  7. SEROQUEL [Suspect]
     Dosage: 100- 600 MG
     Route: 048
     Dates: start: 20050201
  8. SEROQUEL [Suspect]
     Dosage: 100- 600 MG
     Route: 048
     Dates: start: 20050201
  9. SEROQUEL [Suspect]
     Dosage: 100- 600 MG
     Route: 048
     Dates: start: 20050201
  10. SEROQUEL [Suspect]
     Dosage: 200-800  MG
     Route: 048
     Dates: start: 20050201
  11. SEROQUEL [Suspect]
     Dosage: 200-800  MG
     Route: 048
     Dates: start: 20050201
  12. SEROQUEL [Suspect]
     Dosage: 200-800  MG
     Route: 048
     Dates: start: 20050201
  13. SEROQUEL [Suspect]
     Dosage: 100-300  MG
     Route: 048
     Dates: start: 20060601, end: 20060701
  14. SEROQUEL [Suspect]
     Dosage: 100-300  MG
     Route: 048
     Dates: start: 20060601, end: 20060701
  15. SEROQUEL [Suspect]
     Dosage: 100-300  MG
     Route: 048
     Dates: start: 20060601, end: 20060701
  16. SEROQUEL [Suspect]
     Dosage: 100-200  MG
     Route: 048
     Dates: start: 20060701
  17. SEROQUEL [Suspect]
     Dosage: 100-200  MG
     Route: 048
     Dates: start: 20060701
  18. SEROQUEL [Suspect]
     Dosage: 100-200  MG
     Route: 048
     Dates: start: 20060701
  19. RISPERDAL [Concomitant]
     Indication: SCHIZOPHRENIA
     Dosage: 2 - 4 MG
     Dates: start: 20011101
  20. RISPERDAL [Concomitant]
     Dosage: 1-2 MG
     Dates: start: 20040301, end: 20040501
  21. PARACETAMOL [Concomitant]
     Indication: PAIN
     Route: 048
  22. PAXIL [Concomitant]
     Route: 065
  23. LIPITOR [Concomitant]
     Route: 048
  24. NEURONTIN [Concomitant]
     Indication: PAIN
     Route: 048
  25. HYDROCHLOROTHIAZIDE [Concomitant]
     Route: 048
  26. THORAZINE [Concomitant]
     Route: 048
     Dates: start: 19900101, end: 20010101
  27. GEODON [Concomitant]
     Dosage: 40 TO 80 MG
     Dates: start: 20040101, end: 20050101

REACTIONS (13)
  - CHEST PAIN [None]
  - DIABETES MELLITUS [None]
  - GENERAL PHYSICAL HEALTH DETERIORATION [None]
  - HALLUCINATION, AUDITORY [None]
  - HOMICIDAL IDEATION [None]
  - HYPERCHOLESTEROLAEMIA [None]
  - OBESITY [None]
  - PAIN [None]
  - PARANOIA [None]
  - PSYCHOTIC DISORDER [None]
  - SLEEP APNOEA SYNDROME [None]
  - SUICIDAL IDEATION [None]
  - SUICIDE ATTEMPT [None]
